FAERS Safety Report 5453509-6 (Version None)
Quarter: 2007Q3

REPORT INFORMATION
  Report Type: 
  Country: None (occurrence: None)
  Receive Date: 20070913
  Receipt Date: 20070823
  Transmission Date: 20080115
  Serious: Yes (Hospitalization)
  Sender: FDA-Public Use
  Company Number: 6122 / 6037427

PATIENT
  Age: 37 Year
  Sex: Male

DRUGS (4)
  1. CLARITHROMYCIN [Suspect]
  2. DAPSONE [Concomitant]
  3. LOPINAVIR/RITONAVIR (RITONAVIR, LOPINAVIR) [Concomitant]
  4. LAMIVUDINE [Concomitant]

REACTIONS (1)
  - ERYTHEMA MULTIFORME [None]
